FAERS Safety Report 5281015-0 (Version None)
Quarter: 2007Q1

REPORT INFORMATION
  Report Type: 
  Country: None (occurrence: None)
  Receive Date: 20061229
  Receipt Date: 20060808
  Transmission Date: 20070707
  Serious: Yes (Other)
  Sender: FDA-Public Use
  Company Number: 2006UW15870

PATIENT
  Age: 55 Year

DRUGS (3)
  1. CRESTOR [Suspect]
     Dosage: 5 MG PO
     Route: 048
     Dates: start: 20060602
  2. ZOLOFT [Concomitant]
  3. NEXIUM ORAL [Concomitant]

REACTIONS (3)
  - ERYTHEMA OF EYELID [None]
  - EYELID EXFOLIATION [None]
  - EYELID PAIN [None]
